FAERS Safety Report 5657365-2 (Version None)
Quarter: 2008Q1

REPORT INFORMATION
  Report Type: 
  Country: None (occurrence: None)
  Receive Date: 20080310
  Receipt Date: 20080305
  Transmission Date: 20080703
  Serious: Yes (Death)
  Sender: FDA-Public Use
  Company Number: KR-ASTRAZENECA-2007AP08000

PATIENT
  Age: 79 Year
  Sex: Female

DRUGS (5)
  1. SYMBICORT [Suspect]
     Route: 055
     Dates: start: 20070611
  2. ACCOLATE [Concomitant]
     Route: 048
     Dates: start: 20070611
  3. ASPIRIN [Concomitant]
     Route: 048
     Dates: start: 20070409
  4. DIGOXIN [Concomitant]
     Route: 048
     Dates: start: 20070409
  5. ZANIDIP [Concomitant]
     Route: 048
     Dates: start: 20070409

REACTIONS (1)
  - CARDIAC FAILURE [None]
